FAERS Safety Report 8831081 (Version 1)
Quarter: 2012Q4

REPORT INFORMATION
  Report Type: 
  Country: NL (occurrence: NL)
  Receive Date: 20121009
  Receipt Date: 20121009
  Transmission Date: 20130627
  Serious: Yes (Hospitalization)
  Sender: FDA-Public Use
  Company Number: NL-PFIZER INC-2012245030

PATIENT
  Sex: Female
  Weight: 83 kg

DRUGS (5)
  1. GENOTROPIN [Suspect]
     Dosage: 0.7 mg, 1x/day
     Route: 058
     Dates: start: 20040427
  2. MICROGYNON [Concomitant]
     Indication: BLOOD LUTEINISING HORMONE DECREASED
     Dosage: UNK
     Dates: start: 19900715
  3. MICROGYNON [Concomitant]
     Indication: BLOOD FOLLICLE STIMULATING HORMONE DECREASED
  4. MICROGYNON [Concomitant]
     Indication: HYPOGONADISM FEMALE
  5. THYRAX [Concomitant]
     Indication: HYPOTHYROIDISM
     Dosage: UNK
     Dates: start: 19930715

REACTIONS (1)
  - Breast disorder [Unknown]
